FAERS Safety Report 18931442 (Version 3)
Quarter: 2021Q3

REPORT INFORMATION
  Report Type: Spontaneous
  Country: US (occurrence: US)
  Receive Date: 20210224
  Receipt Date: 20210803
  Transmission Date: 20211014
  Serious: No
  Sender: FDA-Public Use
  Company Number: US-SA-2021SA061778

PATIENT
  Sex: Female

DRUGS (8)
  1. METOPROLOL TARTRATE. [Concomitant]
     Active Substance: METOPROLOL TARTRATE
  2. AMLODIPINE BESYLATE. [Concomitant]
     Active Substance: AMLODIPINE BESYLATE
  3. DESOXIMETASONE. [Concomitant]
     Active Substance: DESOXIMETASONE
  4. VITAMIN D3 [Concomitant]
     Active Substance: CHOLECALCIFEROL
  5. HYDROCHLOROTHIAZIDE. [Concomitant]
     Active Substance: HYDROCHLOROTHIAZIDE
  6. NAPROXEN. [Concomitant]
     Active Substance: NAPROXEN
  7. METFORMIN HCL [Concomitant]
     Active Substance: METFORMIN HYDROCHLORIDE
  8. DUPIXENT [Suspect]
     Active Substance: DUPILUMAB
     Indication: DERMATITIS ATOPIC
     Dosage: 300 MG, QOW
     Route: 058

REACTIONS (7)
  - Product dose omission issue [Unknown]
  - Injection site pain [Unknown]
  - Amnesia [Unknown]
  - Thinking abnormal [Unknown]
  - Memory impairment [Unknown]
  - Pruritus [Unknown]
  - Skin wrinkling [Unknown]

NARRATIVE: CASE EVENT DATE: 202103
